FAERS Safety Report 9048574 (Version 1)
Quarter: 2013Q1

REPORT INFORMATION
  Report Type: Spontaneous
  Country: US (occurrence: None)
  Receive Date: 20130130
  Receipt Date: 20130130
  Transmission Date: 20140127
  Serious: Yes (Hospitalization)
  Sender: FDA-Public Use
  Company Number: None

PATIENT
  Age: 61 Year
  Sex: Male
  Weight: 73.7 kg

DRUGS (11)
  1. LITHIUM [Suspect]
     Dosage: CHRONIC
     Route: 048
  2. LIBRIUM [Suspect]
     Dosage: RECENT
     Route: 048
  3. VERSED [Suspect]
     Route: 042
  4. LORAZEPAM [Suspect]
     Route: 042
  5. NORASC [Concomitant]
  6. FOLATE [Concomitant]
  7. METFORMIN [Concomitant]
  8. THIAMINE [Concomitant]
  9. LISINOPRIL [Concomitant]
  10. LOPRESSOR [Concomitant]
  11. COUMADIN [Suspect]

REACTIONS (9)
  - Unresponsive to stimuli [None]
  - Toxicity to various agents [None]
  - International normalised ratio increased [None]
  - Encephalopathy [None]
  - Pneumonia aspiration [None]
  - Hypoxia [None]
  - Respiratory distress [None]
  - Renal failure acute [None]
  - Delirium [None]
